FAERS Safety Report 5826873-3 (Version None)
Quarter: 2008Q3

REPORT INFORMATION
  Report Type: 
  Country: None (occurrence: None)
  Receive Date: 20080725
  Receipt Date: 20080714
  Transmission Date: 20090109
  Serious: Yes (Hospitalization)
  Sender: FDA-Public Use
  Company Number: 2008BI017662

PATIENT
  Age: 63 Year
  Sex: Female

DRUGS (2)
  1. AVONEX [Suspect]
     Indication: MULTIPLE SCLEROSIS
     Dosage: IM; 30 UG;QW;IM
     Route: 030
     Dates: start: 20010601, end: 20030101
  2. AVONEX [Suspect]
     Indication: MULTIPLE SCLEROSIS
     Dosage: IM; 30 UG;QW;IM
     Route: 030
     Dates: start: 20030101

REACTIONS (6)
  - BACTERIAL INFECTION [None]
  - DECUBITUS ULCER [None]
  - DIARRHOEA [None]
  - GASTRIC INFECTION [None]
  - PNEUMONIA ASPIRATION [None]
  - STAPHYLOCOCCAL INFECTION [None]
